FAERS Safety Report 9297376 (Version 2)
Quarter: 2013Q4

REPORT INFORMATION
  Report Type: Spontaneous
  Country: US (occurrence: US)
  Receive Date: 20130520
  Receipt Date: 20131120
  Transmission Date: 20140711
  Serious: No
  Sender: FDA-Public Use
  Company Number: US-BIOGENIDEC-2013BI044601

PATIENT
  Sex: Female

DRUGS (1)
  1. TYSABRI [Suspect]
     Indication: MULTIPLE SCLEROSIS
     Route: 042
     Dates: start: 20100620, end: 20130326

REACTIONS (3)
  - Memory impairment [Not Recovered/Not Resolved]
  - Emotional disorder [Recovered/Resolved]
  - Anxiety [Not Recovered/Not Resolved]
